FAERS Safety Report 11788864 (Version 1)
Quarter: 2015Q4

REPORT INFORMATION
  Report Type: Spontaneous
  Country: US (occurrence: None)
  Receive Date: 20151130
  Receipt Date: 20151130
  Transmission Date: 20160305
  Serious: Yes (Disabling)
  Sender: FDA-Public Use
  Company Number: None

PATIENT
  Age: 74 Year
  Sex: Female
  Weight: 65.77 kg

DRUGS (6)
  1. COQ10 [Concomitant]
     Active Substance: UBIDECARENONE
  2. TUDORZA PRESSAIR [Suspect]
     Active Substance: ACLIDINIUM BROMIDE
     Indication: CHRONIC OBSTRUCTIVE PULMONARY DISEASE
  3. OMEGA THREE [Concomitant]
  4. VITAMIN D3 [Concomitant]
     Active Substance: CHOLECALCIFEROL
  5. TURMERIC [Concomitant]
     Active Substance: TURMERIC
  6. VITAMIN C [Concomitant]
     Active Substance: ASCORBIC ACID

REACTIONS (4)
  - Hypersensitivity [None]
  - Feeling abnormal [None]
  - Dyspnoea [None]
  - Coating in mouth [None]
